FAERS Safety Report 21167987 (Version 2)
Quarter: 2025Q1

REPORT INFORMATION
  Report Type: Spontaneous
  Country: US (occurrence: US)
  Receive Date: 20220803
  Receipt Date: 20250317
  Transmission Date: 20250409
  Serious: Yes (Other)
  Sender: MYLAN
  Company Number: US-MYLANLABS-2022M1083367

PATIENT
  Age: 107 Month
  Sex: Male

DRUGS (4)
  1. ETOPOSIDE [Suspect]
     Active Substance: ETOPOSIDE
     Indication: Medulloblastoma recurrent
     Dosage: 50 MILLIGRAM/SQ. METER, 28D CYCLE (50 MILLIGRAM/SQ. METER, CYCLE, PER DOSE AT DAYS 1-7)
  2. TEMOZOLOMIDE [Suspect]
     Active Substance: TEMOZOLOMIDE
     Indication: Medulloblastoma recurrent
     Dosage: 150 MILLIGRAM/SQ. METER, 28D CYCLE (PER DOSE AT DAYS 1-5 IN A 28 DAY CYCLE)
  3. IRINOTECAN [Suspect]
     Active Substance: IRINOTECAN
     Indication: Medulloblastoma recurrent
     Dosage: 125 MILLIGRAM/SQ. METER, 28D CYCLE {AT DAYS?1 AND 8 IN 28?DAYS CYCLE}
  4. CYCLOPHOSPHAMIDE [Suspect]
     Active Substance: CYCLOPHOSPHAMIDE
     Indication: Medulloblastoma recurrent
     Dosage: 1500 MILLIGRAM/SQ. METER, 28D CYCLE {PER DOSE AT DAYS 1 AND 2 IN A 28 DAY CYCLE}

REACTIONS (6)
  - Drug ineffective [Unknown]
  - Disease progression [Unknown]
  - Myelosuppression [Unknown]
  - Febrile neutropenia [Unknown]
  - Infection [Unknown]
  - Off label use [Unknown]
